FAERS Safety Report 24613561 (Version 2)
Quarter: 2024Q4

REPORT INFORMATION
  Report Type: Spontaneous
  Country: AT (occurrence: AT)
  Receive Date: 20241113
  Receipt Date: 20241126
  Transmission Date: 20250114
  Serious: Yes (Life-Threatening, Hospitalization)
  Sender: TEVA
  Company Number: AT-TEVA-VS-3261992

PATIENT
  Age: 29 Year
  Sex: Female

DRUGS (12)
  1. DIAZEPAM [Suspect]
     Active Substance: DIAZEPAM
     Indication: New onset refractory status epilepticus
     Route: 065
  2. MIDAZOLAM [Suspect]
     Active Substance: MIDAZOLAM
     Indication: New onset refractory status epilepticus
     Route: 065
  3. TOPIRAMATE [Suspect]
     Active Substance: TOPIRAMATE
     Indication: New onset refractory status epilepticus
     Route: 065
  4. BARBEXACLONE [Suspect]
     Active Substance: BARBEXACLONE
     Indication: New onset refractory status epilepticus
     Route: 065
  5. PHENYTOIN [Suspect]
     Active Substance: PHENYTOIN
     Indication: New onset refractory status epilepticus
     Route: 065
  6. CLONAZEPAM [Suspect]
     Active Substance: CLONAZEPAM
     Indication: New onset refractory status epilepticus
     Route: 065
  7. VALPROATE SODIUM [Suspect]
     Active Substance: VALPROATE SODIUM
     Indication: New onset refractory status epilepticus
     Route: 065
  8. PROPOFOL [Suspect]
     Active Substance: PROPOFOL
     Indication: New onset refractory status epilepticus
     Route: 065
  9. LEVETIRACETAM [Suspect]
     Active Substance: LEVETIRACETAM
     Indication: New onset refractory status epilepticus
     Route: 065
  10. THIOPENTAL SODIUM [Suspect]
     Active Substance: THIOPENTAL SODIUM
     Indication: New onset refractory status epilepticus
     Route: 065
  11. RUFINAMIDE [Suspect]
     Active Substance: RUFINAMIDE
     Indication: New onset refractory status epilepticus
     Route: 065
  12. ZONISAMIDE [Suspect]
     Active Substance: ZONISAMIDE
     Indication: New onset refractory status epilepticus
     Route: 065

REACTIONS (2)
  - Brain oedema [Unknown]
  - Drug ineffective [Unknown]
